FAERS Safety Report 6758110-X (Version None)
Quarter: 2010Q2

REPORT INFORMATION
  Report Type: 
  Country: None (occurrence: None)
  Receive Date: 20100607
  Receipt Date: 20100602
  Transmission Date: 20101027
  Serious: Yes (Other)
  Sender: FDA-Public Use
  Company Number: US-RB-023512-10

PATIENT
  Age: 29 Year
  Sex: Female

DRUGS (3)
  1. SUBOXONE [Suspect]
     Route: 065
     Dates: start: 20081201, end: 20091011
  2. SUBOXONE [Suspect]
     Route: 060
     Dates: start: 20091012
  3. VALIUM [Concomitant]
     Indication: POST-TRAUMATIC STRESS DISORDER
     Route: 048

REACTIONS (2)
  - DRUG EXPOSURE DURING PREGNANCY [None]
  - SELECTIVE ABORTION [None]
